FAERS Safety Report 14918165 (Version 1)
Quarter: 2018Q2

REPORT INFORMATION
  Report Type: Spontaneous
  Country: FR (occurrence: FR)
  Receive Date: 20180521
  Receipt Date: 20180521
  Transmission Date: 20180711
  Serious: Yes (Other)
  Sender: FDA-Public Use
  Company Number: FR-MERCK KGAA-2048130

PATIENT
  Age: 51 Year
  Sex: Female

DRUGS (1)
  1. NOVOTHYROX [Suspect]
     Active Substance: LEVOTHYROXINE SODIUM
     Indication: PRODUCT USED FOR UNKNOWN INDICATION

REACTIONS (26)
  - Asthenia [None]
  - Cortisol decreased [None]
  - Aggression [None]
  - Blood thyroid stimulating hormone decreased [None]
  - Headache [None]
  - Depression [None]
  - Dizziness [None]
  - Crying [None]
  - Memory impairment [None]
  - Impaired work ability [None]
  - Cellulitis [None]
  - Insomnia [None]
  - Alopecia [None]
  - Onychoclasis [None]
  - Loss of personal independence in daily activities [None]
  - Mood swings [None]
  - C-reactive protein increased [None]
  - Muscle spasms [None]
  - Social avoidant behaviour [None]
  - Aversion [None]
  - Hospitalisation [None]
  - Hyperchlorhydria [None]
  - Pharyngitis [None]
  - Frustration tolerance decreased [None]
  - Anxiety [None]
  - Dyspareunia [None]

NARRATIVE: CASE EVENT DATE: 20170307
